FAERS Safety Report 8263344-1 (Version None)
Quarter: 2012Q2

REPORT INFORMATION
  Report Type: 
  Country: None (occurrence: None)
  Receive Date: 20120405
  Receipt Date: 20120328
  Transmission Date: 20120825
  Serious: Yes (Other)
  Sender: FDA-Public Use
  Company Number: PHHY2012CA027753

PATIENT
  Sex: Male

DRUGS (1)
  1. VALSARTAN  AND HYDROCHLOROTHIAZIDE [Suspect]
     Indication: HYPERTENSION
     Dosage: 160/25MG
     Route: 048
     Dates: start: 20111003

REACTIONS (3)
  - OEDEMA PERIPHERAL [None]
  - SWOLLEN TONGUE [None]
  - PRODUCT QUALITY ISSUE [None]
